FAERS Safety Report 8241031-3 (Version None)
Quarter: 2012Q1

REPORT INFORMATION
  Report Type: 
  Country: None (occurrence: None)
  Receive Date: 20120328
  Receipt Date: 20120319
  Transmission Date: 20120608
  Serious: Yes (Death, Hospitalization)
  Sender: FDA-Public Use
  Company Number: US-MERCK-1201USA02548

PATIENT
  Age: 72 Year
  Sex: Female

DRUGS (11)
  1. PAXIL [Concomitant]
     Indication: DEPRESSION
     Route: 065
     Dates: start: 20020301, end: 20091201
  2. MOBIC [Concomitant]
     Indication: ARTHRALGIA
     Route: 065
     Dates: start: 20020101, end: 20091201
  3. ALENDRONATE SODIUM [Suspect]
     Indication: OSTEOPOROSIS
     Route: 048
     Dates: start: 20080101, end: 20100101
  4. CALCIUM (UNSPECIFIED) [Concomitant]
     Route: 065
  5. FOSAMAX PLUS D [Suspect]
     Indication: OSTEOPOROSIS
     Route: 048
  6. FOSAMAX [Suspect]
     Indication: OSTEOPOROSIS
     Route: 048
     Dates: start: 20020101, end: 20080101
  7. VITAMINS (UNSPECIFIED) [Concomitant]
     Route: 065
  8. FUROSEMIDE [Concomitant]
     Indication: HYPERTENSION
     Route: 065
     Dates: start: 20020101, end: 20091201
  9. ZAROXOLYN [Concomitant]
     Indication: HYPERTENSION
     Route: 065
     Dates: start: 20020101, end: 20091201
  10. KLOR-CON [Concomitant]
     Indication: BLOOD POTASSIUM
     Route: 065
     Dates: start: 20020301, end: 20091201
  11. ZONALON [Concomitant]
     Indication: ECZEMA
     Route: 065
     Dates: start: 20020401, end: 20081201

REACTIONS (11)
  - CARDIAC FAILURE [None]
  - OSTEOARTHRITIS [None]
  - FALL [None]
  - HAEMORRHAGE [None]
  - CHRONIC OBSTRUCTIVE PULMONARY DISEASE [None]
  - RESPIRATORY FAILURE [None]
  - GOUT [None]
  - EYE INFLAMMATION [None]
  - THYROID DISORDER [None]
  - FEMUR FRACTURE [None]
  - FAT EMBOLISM [None]
